APPROVED DRUG PRODUCT: DEXTROAMP SACCHARATE, AMP ASPARTATE, DEXTROAMP SULFATE AND AMP SULFATE
Active Ingredient: AMPHETAMINE ASPARTATE; AMPHETAMINE SULFATE; DEXTROAMPHETAMINE SACCHARATE; DEXTROAMPHETAMINE SULFATE
Strength: 7.5MG;7.5MG;7.5MG;7.5MG
Dosage Form/Route: TABLET;ORAL
Application: A040439 | Product #003 | TE Code: AB
Applicant: SANDOZ INC
Approved: Jun 14, 2002 | RLD: No | RS: No | Type: RX